FAERS Safety Report 10305841 (Version 1)
Quarter: 2014Q3

REPORT INFORMATION
  Report Type: Spontaneous
  Country: US (occurrence: None)
  Receive Date: 20140711
  Receipt Date: 20140711
  Transmission Date: 20150326
  Serious: Yes (Hospitalization)
  Sender: FDA-Public Use
  Company Number: UNT-2014-003357

PATIENT
  Age: 67 Year
  Sex: Female
  Weight: 92.1 kg

DRUGS (1)
  1. REMODULIN [Suspect]
     Active Substance: TREPROSTINIL
     Indication: PULMONARY ARTERIAL HYPERTENSION
     Route: 041
     Dates: start: 20120303

REACTIONS (2)
  - Fall [None]
  - Ulna fracture [None]

NARRATIVE: CASE EVENT DATE: 201406
